FAERS Safety Report 21957005 (Version 1)
Quarter: 2023Q1

REPORT INFORMATION
  Report Type: Other
  Country: US (occurrence: None)
  Receive Date: 20230206
  Receipt Date: 20230206
  Transmission Date: 20230418
  Serious: Yes (Other)
  Sender: FDA-Public Use
  Company Number: US-ROCHE-2058200

PATIENT
  Sex: Male

DRUGS (2)
  1. VALCYTE [Suspect]
     Active Substance: VALGANCICLOVIR HYDROCHLORIDE
     Indication: Lung transplant
     Dosage: 1 TAB EVERY MONDAY, WEDNESDAY, AND FRIDAY
     Route: 048
  2. VALCYTE [Suspect]
     Active Substance: VALGANCICLOVIR HYDROCHLORIDE
     Dosage: EVERY MONDAY WEDNESDAY, AND FRIDAY
     Route: 048

REACTIONS (7)
  - Off label use [Unknown]
  - Lung transplant rejection [Unknown]
  - Product prescribing error [Unknown]
  - Cardiac disorder [Unknown]
  - Atrial fibrillation [Unknown]
  - Lung disorder [Unknown]
  - Malaise [Unknown]
